FAERS Safety Report 19741407 (Version 2)
Quarter: 2021Q4

REPORT INFORMATION
  Report Type: Spontaneous
  Country: US (occurrence: US)
  Receive Date: 20210825
  Receipt Date: 20211009
  Transmission Date: 20220303
  Serious: No
  Sender: FDA-Public Use
  Company Number: US-TEVA-2021-US-1942996

PATIENT
  Age: 67 Year
  Sex: Female
  Weight: 66.68 kg

DRUGS (1)
  1. ESTRADIOL [Suspect]
     Active Substance: ESTRADIOL
     Route: 065
     Dates: start: 20210401

REACTIONS (5)
  - Hot flush [Unknown]
  - Abdominal distension [Unknown]
  - Dizziness [Unknown]
  - Feeling abnormal [Unknown]
  - Weight increased [Unknown]
